FAERS Safety Report 20102528 (Version 1)
Quarter: 2021Q4

REPORT INFORMATION
  Report Type: Report from Study
  Country: US (occurrence: US)
  Receive Date: 20211123
  Receipt Date: 20211123
  Transmission Date: 20220303
  Serious: Yes (Other)
  Sender: FDA-Public Use
  Company Number: US-GLAXOSMITHKLINE-US2021229080

PATIENT
  Sex: Female

DRUGS (2)
  1. NIRAPARIB [Suspect]
     Active Substance: NIRAPARIB
     Indication: Ovarian neoplasm
     Dosage: 200 MG, QD
     Dates: start: 20210727
  2. NIRAPARIB [Suspect]
     Active Substance: NIRAPARIB
     Indication: Ovarian cancer
     Dosage: 200 MG, QD (200MG PM)
     Route: 048
     Dates: start: 20210924, end: 20211105

REACTIONS (4)
  - Recurrent cancer [Unknown]
  - Malignant neoplasm progression [Unknown]
  - Ascites [Not Recovered/Not Resolved]
  - Drug ineffective [Unknown]
